FAERS Safety Report 25985436 (Version 2)
Quarter: 2025Q4

REPORT INFORMATION
  Report Type: Spontaneous
  Country: AU (occurrence: None)
  Receive Date: 20251031
  Receipt Date: 20251117
  Transmission Date: 20260118
  Serious: Yes (Other)
  Sender: ENDO
  Company Number: AU-ENDO USA, INC.-2025-001804

PATIENT
  Sex: Female

DRUGS (1)
  1. TESTOSTERONE [Suspect]
     Active Substance: TESTOSTERONE
     Indication: Transgender hormonal therapy
     Dosage: UNK UNKNOWN, UNKNOWN, (FOR OVER 7 YR)
     Route: 065

REACTIONS (4)
  - Haemorrhagic cyst [Unknown]
  - Cervical cyst [Unknown]
  - Hyperplasia [Unknown]
  - Off label use [Unknown]
